FAERS Safety Report 24996398 (Version 5)
Quarter: 2025Q2

REPORT INFORMATION
  Report Type: Spontaneous
  Country: US (occurrence: US)
  Receive Date: 20250221
  Receipt Date: 20250401
  Transmission Date: 20250716
  Serious: No
  Sender: PFIZER
  Company Number: US-PFIZER INC-202500037375

PATIENT
  Age: 58 Year
  Sex: Female
  Weight: 86.18 kg

DRUGS (4)
  1. GENOTROPIN [Suspect]
     Active Substance: SOMATROPIN
     Indication: Growth hormone deficiency
     Dosage: UNK, 1X/DAY
  2. GENOTROPIN [Suspect]
     Active Substance: SOMATROPIN
     Indication: Hypopituitarism
     Dosage: 0.5 MG, DAILY
     Route: 058
  3. GENOTROPIN [Suspect]
     Active Substance: SOMATROPIN
     Indication: Brain neoplasm
  4. GENOTROPIN [Suspect]
     Active Substance: SOMATROPIN
     Indication: Epinephrine decreased

REACTIONS (3)
  - Device power source issue [Unknown]
  - Device information output issue [Unknown]
  - Expired device used [Unknown]
